FAERS Safety Report 8262965-X (Version None)
Quarter: 2012Q2

REPORT INFORMATION
  Report Type: 
  Country: None (occurrence: None)
  Receive Date: 20120405
  Receipt Date: 20120328
  Transmission Date: 20120825
  Serious: Yes (Disabling, Other)
  Sender: FDA-Public Use
  Company Number: US-MERCK-1111USA00632

PATIENT
  Age: 69 Year
  Sex: Female
  Weight: 64 kg

DRUGS (8)
  1. ACTONEL [Suspect]
     Indication: OSTEOPOROSIS
     Route: 048
     Dates: start: 20040101, end: 20090301
  2. EVISTA [Suspect]
     Indication: OSTEOPOROSIS
     Route: 048
     Dates: start: 20091201
  3. FOSAMAX [Suspect]
     Indication: OSTEOPOROSIS
     Route: 048
     Dates: start: 20040122, end: 20050228
  4. ACTONEL [Suspect]
     Route: 048
     Dates: start: 20050228, end: 20090304
  5. ACTONEL [Suspect]
     Indication: OSTEOPENIA
     Route: 048
     Dates: start: 20040101, end: 20090301
  6. ACTONEL [Suspect]
     Route: 048
     Dates: start: 20050228, end: 20090304
  7. ALENDRONATE SODIUM [Suspect]
     Route: 048
     Dates: start: 20080624, end: 20081230
  8. FOSAMAX [Suspect]
     Indication: OSTEOPENIA
     Route: 048
     Dates: start: 20040122, end: 20050228

REACTIONS (11)
  - ORAL INFECTION [None]
  - TOOTH INFECTION [None]
  - ACTINOMYCOSIS [None]
  - TOOTH DISORDER [None]
  - TOOTH EXTRACTION [None]
  - DENTURE WEARER [None]
  - BREAST CANCER [None]
  - OSTEOMYELITIS [None]
  - OSTEONECROSIS OF JAW [None]
  - IMPAIRED HEALING [None]
  - TOOTH ABSCESS [None]
